FAERS Safety Report 7309142-4 (Version None)
Quarter: 2011Q1

REPORT INFORMATION
  Report Type: 
  Country: None (occurrence: None)
  Receive Date: 20110211
  Receipt Date: 20110128
  Transmission Date: 20110831
  Serious: Yes (Hospitalization)
  Sender: FDA-Public Use
  Company Number: TPG2011A00144

PATIENT
  Age: 77 Year
  Sex: Male

DRUGS (14)
  1. RESONIUM TAB [Suspect]
     Indication: PRODUCT USED FOR UNKNOWN INDICATION
     Dosage: 2 DF (1 DF,1-0-1) PER ORAL
     Route: 048
     Dates: start: 20100101, end: 20101201
  2. PLAQUENIL [Suspect]
     Indication: POLYARTHRITIS
     Dosage: 400 MG (200 MG,0-0-2) PER ORAL
     Route: 048
     Dates: start: 20101201, end: 20101208
  3. METOPROLOL SUCCINATE [Concomitant]
  4. TAMSULOISN MEPHA (TAMSULOSIN HYDROCHLORIDE) [Concomitant]
  5. PROSCAR [Concomitant]
  6. PRAVALOTIN (PRAVASTATIN SODIUM) [Concomitant]
  7. METAMUCIL (PLANTAGO OVATA) [Concomitant]
  8. MAGNESIUM ASPARTATE (MAGNESIUM ASPARTATE) [Concomitant]
  9. ACTOS [Suspect]
     Indication: TYPE 2 DIABETES MELLITUS
     Dosage: 60 MG (30 MG,1-0-1) PER ORAL
     Route: 048
     Dates: start: 20100101, end: 20101201
  10. TRIMIPRAMINE MALEATE [Concomitant]
  11. MARCUMAR [Concomitant]
  12. ENATEC (ENALAPRIL MALEATE) [Suspect]
     Indication: PRODUCT USED FOR UNKNOWN INDICATION
     Dosage: 20 MG (10 MG,1-0-1) PER ORAL
     Route: 048
  13. GLICLAZID MEPHA (GLICLAZIDE) [Concomitant]
  14. PREDNISONE TAB [Concomitant]

REACTIONS (9)
  - RASH MACULO-PAPULAR [None]
  - DERMATITIS EXFOLIATIVE [None]
  - COUGH [None]
  - INFECTION [None]
  - HYPOTENSION [None]
  - INTERSTITIAL LUNG DISEASE [None]
  - SIMPLEX VIRUS TEST POSITIVE [None]
  - HAEMOPTYSIS [None]
  - ERYTHEMA MULTIFORME [None]
